FAERS Safety Report 16214699 (Version 1)
Quarter: 2019Q2

REPORT INFORMATION
  Report Type: Spontaneous
  Country: None (occurrence: None)
  Receive Date: 20190418
  Receipt Date: 20190418
  Transmission Date: 20190711
  Serious: Yes (Other)
  Sender: FDA-Public Use
  Company Number: -FOUNDATIONCONSUMERHC-2019-VN-000001

PATIENT
  Age: 37 Year
  Sex: Female

DRUGS (1)
  1. LEVONORGESTREL (UNSPECIFIED) [Suspect]
     Active Substance: LEVONORGESTREL
     Indication: POST COITAL CONTRACEPTION
     Dosage: (1.5 MG,SINGLE ONE TABLET DOSE)
     Route: 048
     Dates: start: 20190125, end: 20190125

REACTIONS (3)
  - Pregnancy after post coital contraception [Unknown]
  - Abortion spontaneous [Recovered/Resolved]
  - Drug ineffective [Unknown]

NARRATIVE: CASE EVENT DATE: 201901
